FAERS Safety Report 6113260-6 (Version None)
Quarter: 2009Q1

REPORT INFORMATION
  Report Type: 
  Country: None (occurrence: None)
  Receive Date: 20090312
  Receipt Date: 20090304
  Transmission Date: 20090719
  Serious: Yes (Life-Threatening, Hospitalization, Other)
  Sender: FDA-Public Use
  Company Number: US-GENENTECH-277668

PATIENT
  Sex: Female

DRUGS (15)
  1. AVASTIN [Suspect]
     Indication: BREAST CANCER METASTATIC
     Dosage: 15 MG/KG, Q3W
     Route: 042
     Dates: start: 20081113
  2. HERCEPTIN [Suspect]
     Indication: BREAST CANCER METASTATIC
     Dosage: 6 MG/KG, Q3W
     Route: 042
     Dates: start: 20080801
  3. ABRAXANE [Suspect]
     Indication: BREAST CANCER METASTATIC
     Dosage: 260 MG/KG, Q3W
     Route: 042
     Dates: start: 20081113
  4. DEXAMETHASONE [Concomitant]
     Indication: DRUG USE FOR UNKNOWN INDICATION
     Dosage: 2 MG, BID
  5. EFFEXOR [Concomitant]
     Indication: DEPRESSION
     Dosage: 75 MG, QD
  6. LYRICA [Concomitant]
     Indication: DRUG USE FOR UNKNOWN INDICATION
     Dosage: 100 MG, QHS
  7. METHADONE HCL [Concomitant]
     Indication: PAIN
     Dosage: 5 MG, BID
  8. PERCOCET [Concomitant]
     Indication: PAIN
     Dosage: 325 MG, PRN
  9. VICODIN [Concomitant]
     Indication: PAIN
     Dosage: 500 MG, PRN
  10. NAPROXEN [Concomitant]
     Indication: DRUG USE FOR UNKNOWN INDICATION
     Dosage: 500 MG, QD
  11. LOVENOX [Concomitant]
     Indication: DRUG USE FOR UNKNOWN INDICATION
     Route: 058
  12. TRAZODONE HCL [Concomitant]
     Indication: DRUG USE FOR UNKNOWN INDICATION
     Dosage: 50 MG, QHS
  13. PROCARBAZINE [Concomitant]
     Indication: NAUSEA
     Dosage: 10 MG, PRN
  14. PROCARBAZINE [Concomitant]
     Indication: VOMITING
  15. BENZONATATE [Concomitant]
     Indication: DRUG USE FOR UNKNOWN INDICATION
     Dosage: 20 MG, TID

REACTIONS (1)
  - GASTROINTESTINAL PERFORATION [None]
